FAERS Safety Report 7392258-4 (Version None)
Quarter: 2011Q2

REPORT INFORMATION
  Report Type: 
  Country: None (occurrence: None)
  Receive Date: 20110404
  Receipt Date: 20110323
  Transmission Date: 20111010
  Serious: Yes (Hospitalization)
  Sender: FDA-Public Use
  Company Number: JP-MERCK-1103USA03378

PATIENT
  Age: 30 Year
  Sex: Female

DRUGS (5)
  1. PARIET [Suspect]
     Dosage: DIVIDED DOSE FREQUENCY
     Route: 048
     Dates: start: 20110201, end: 20110321
  2. ASACOL [Suspect]
     Dosage: DIVIDED DOSE FREQUENCY U
     Route: 048
     Dates: start: 20110201, end: 20110321
  3. BAKTAR [Suspect]
     Dosage: DIVIDED DOSE FREQUENCY U
     Route: 048
     Dates: start: 20110224, end: 20110321
  4. PREDONINE [Suspect]
     Dosage: IT IS A DIVIDED FREQUENCY U DURING 8-10 TABS/DAY
     Route: 065
     Dates: end: 20110321
  5. FOSAMAX [Suspect]
     Indication: OSTEOPOROSIS
     Route: 048
     Dates: start: 20110224, end: 20110321

REACTIONS (1)
  - AGRANULOCYTOSIS [None]
